FAERS Safety Report 7045800-7 (Version None)
Quarter: 2010Q4

REPORT INFORMATION
  Report Type: 
  Country: None (occurrence: None)
  Receive Date: 20101014
  Receipt Date: 20101006
  Transmission Date: 20110411
  Serious: Yes (Other)
  Sender: FDA-Public Use
  Company Number: US-JNJFOC-20070103301

PATIENT
  Sex: Female

DRUGS (4)
  1. IBUPROFEN [Suspect]
     Indication: DYSMENORRHOEA
     Route: 048
  2. EXTRA STRENGTH TYLENOL PM [Suspect]
     Indication: DYSMENORRHOEA
     Route: 048
  3. MIDOL EXTENDED RELIEF CAPLETS [Suspect]
     Indication: DYSMENORRHOEA
     Route: 048
  4. ANALGESIC [Suspect]
     Indication: DYSMENORRHOEA
     Route: 048

REACTIONS (2)
  - DYSPNOEA [None]
  - INTENTIONAL DRUG MISUSE [None]
